FAERS Safety Report 19614083 (Version 1)
Quarter: 2021Q3

REPORT INFORMATION
  Report Type: Spontaneous
  Country: US (occurrence: US)
  Receive Date: 20210726
  Receipt Date: 20210726
  Transmission Date: 20211014
  Serious: No
  Sender: FDA-Public Use
  Company Number: None

PATIENT
  Age: 63 Year
  Sex: Female

DRUGS (6)
  1. METOPROLOL. [Concomitant]
     Active Substance: METOPROLOL
  2. ALPRAZOLAM. [Concomitant]
     Active Substance: ALPRAZOLAM
  3. DOFETILIDE. [Suspect]
     Active Substance: DOFETILIDE
     Indication: ATRIAL FIBRILLATION
     Route: 048
     Dates: start: 20200127
  4. WARFARIN [Concomitant]
     Active Substance: WARFARIN
  5. PRAVASTATIN. [Concomitant]
     Active Substance: PRAVASTATIN
  6. LINIOPRIL [Concomitant]

REACTIONS (2)
  - Colon cancer [None]
  - Contraindicated product administered [None]

NARRATIVE: CASE EVENT DATE: 20210716
